FAERS Safety Report 21567052 (Version 1)
Quarter: 2022Q4

REPORT INFORMATION
  Report Type: Spontaneous
  Country: US (occurrence: None)
  Receive Date: 20221107
  Receipt Date: 20221107
  Transmission Date: 20230113
  Serious: No
  Sender: FDA-Public Use
  Company Number: None

PATIENT
  Age: 63 Year
  Sex: Female
  Weight: 98.1 kg

DRUGS (1)
  1. TEPEZZA [Suspect]
     Active Substance: TEPROTUMUMAB-TRBW
     Indication: Thyrotoxic crisis
     Route: 042

REACTIONS (2)
  - Blood pressure increased [None]
  - Infusion related reaction [None]

NARRATIVE: CASE EVENT DATE: 20221106
